FAERS Safety Report 9124805 (Version 3)
Quarter: 2013Q3

REPORT INFORMATION
  Report Type: Report from Study
  Country: US (occurrence: US)
  Receive Date: 20130121
  Receipt Date: 20130703
  Transmission Date: 20140515
  Serious: Yes (Hospitalization, Other)
  Sender: FDA-Public Use
  Company Number: US-ACTELION-A-NJ2012-69755

PATIENT
  Age: 46 Year
  Sex: Female

DRUGS (11)
  1. TRACLEER [Suspect]
     Indication: PULMONARY ARTERIAL HYPERTENSION
     Dosage: 62.5 MG, BID
     Route: 048
     Dates: start: 2006
  2. WARFARIN [Concomitant]
     Dosage: 75 MG, QD
     Dates: start: 2006
  3. FUROSEMIDE [Concomitant]
     Dosage: 400 MG, QD
     Dates: start: 2006
  4. NIFEDIPINE [Concomitant]
     Dosage: 30 MG, BID
     Dates: start: 2006
  5. PREDNISONE [Concomitant]
     Dosage: 5 MG, QD
     Dates: start: 2006
  6. LANOXIN [Concomitant]
     Dosage: 0.25 MG, UNK
     Dates: start: 2006
  7. OMEPRAZOLE [Concomitant]
     Dosage: 20 MG, QD
     Dates: start: 2006
  8. SYNTHROID [Concomitant]
     Dosage: 50 MG, QD
     Dates: start: 2006
  9. AZATHIOPRINE [Concomitant]
     Dosage: 50 MG, QD
     Dates: start: 2006
  10. TRAZODONE [Concomitant]
     Dosage: 50 G, QD
  11. K-DUR [Concomitant]
     Dosage: 20 UNK, UNK

REACTIONS (15)
  - Cough [Not Recovered/Not Resolved]
  - Hysterectomy [Recovered/Resolved]
  - Amenorrhoea [Recovered/Resolved]
  - Abdominal pain [Recovered/Resolved]
  - Pelvic pain [Recovered/Resolved]
  - Bronchitis [Recovered/Resolved]
  - Headache [Recovered/Resolved]
  - Pyrexia [Recovered/Resolved]
  - Systemic lupus erythematosus [Unknown]
  - Pulmonary arterial hypertension [Unknown]
  - Exercise tolerance decreased [Unknown]
  - Dyspnoea [Unknown]
  - Fatigue [Unknown]
  - Chest pain [Unknown]
  - Condition aggravated [Recovered/Resolved]
